FAERS Safety Report 7511316-4 (Version None)
Quarter: 2011Q2

REPORT INFORMATION
  Report Type: 
  Country: None (occurrence: None)
  Receive Date: 20110531
  Receipt Date: 20110418
  Transmission Date: 20111010
  Serious: Yes (Other)
  Sender: FDA-Public Use
  Company Number: US-BAYER-201034590NA

PATIENT
  Age: 34 Year
  Sex: Female
  Weight: 93.424 kg

DRUGS (4)
  1. YASMIN [Suspect]
     Indication: PREMENSTRUAL SYNDROME
     Route: 048
     Dates: start: 20031001, end: 20051201
  2. ZANTAC [Concomitant]
  3. PAXIL [Concomitant]
  4. YASMIN [Suspect]

REACTIONS (4)
  - ABDOMINAL DISCOMFORT [None]
  - GALLBLADDER DISORDER [None]
  - DIARRHOEA [None]
  - CHOLECYSTITIS CHRONIC [None]
